FAERS Safety Report 24029058 (Version 1)
Quarter: 2024Q2

REPORT INFORMATION
  Report Type: Spontaneous
  Country: US (occurrence: None)
  Receive Date: 20240628
  Receipt Date: 20240628
  Transmission Date: 20240716
  Serious: Yes (Hospitalization)
  Sender: FDA-Public Use
  Company Number: None

PATIENT
  Sex: Female

DRUGS (1)
  1. CAPECITABINE [Suspect]
     Active Substance: CAPECITABINE
     Indication: Breast cancer female
     Dosage: FREQUENCY : AS DIRECTED;?
     Route: 048
     Dates: start: 202404

REACTIONS (6)
  - Skin exfoliation [None]
  - Diarrhoea [None]
  - Hypoaesthesia [None]
  - Paraesthesia [None]
  - Weight decreased [None]
  - Pneumothorax [None]
